FAERS Safety Report 12777552 (Version 1)
Quarter: 2016Q3

REPORT INFORMATION
  Report Type: Spontaneous
  Country: US (occurrence: US)
  Receive Date: 20160924
  Receipt Date: 20160924
  Transmission Date: 20161109
  Serious: No
  Sender: FDA-Public Use
  Company Number: US-TEVA-648931USA

PATIENT
  Sex: Female
  Weight: 61.29 kg

DRUGS (2)
  1. TRAZODONE [Suspect]
     Active Substance: TRAZODONE HYDROCHLORIDE
     Indication: SLEEP DISORDER
     Route: 065
     Dates: start: 2011
  2. CLONAZEPAM. [Suspect]
     Active Substance: CLONAZEPAM
     Indication: SLEEP DISORDER
     Dosage: .5 MILLIGRAM DAILY; TAKE ONE TABLET BY MOUTH EVERY EVENING FOR SLEEP.
     Route: 048
     Dates: start: 2011

REACTIONS (6)
  - Product use issue [Unknown]
  - Thinking abnormal [Unknown]
  - Fear [Unknown]
  - Stress [Unknown]
  - Anxiety [Unknown]
  - Obsessive-compulsive disorder [Unknown]

NARRATIVE: CASE EVENT DATE: 2011
